FAERS Safety Report 24766780 (Version 10)
Quarter: 2025Q2

REPORT INFORMATION
  Report Type: Spontaneous
  Country: PL (occurrence: PL)
  Receive Date: 20241223
  Receipt Date: 20250403
  Transmission Date: 20250716
  Serious: Yes (Hospitalization, Other)
  Sender: SANDOZ
  Company Number: PL-USP-ICSR-2024-02-08-09-34-42-48-49-79-86-96-102-107-128-129-132_128

PATIENT
  Age: 36 Year
  Sex: Female

DRUGS (61)
  1. AMOXICILLIN [Suspect]
     Active Substance: AMOXICILLIN
     Indication: Toothache
     Route: 065
  2. AMOXICILLIN [Suspect]
     Active Substance: AMOXICILLIN
     Route: 065
  3. BENZYDAMINE [Suspect]
     Active Substance: BENZYDAMINE
     Indication: Toothache
     Route: 061
  4. BENZYDAMINE [Suspect]
     Active Substance: BENZYDAMINE
     Route: 061
  5. BENZYDAMINE [Suspect]
     Active Substance: BENZYDAMINE
     Route: 061
  6. BUPRENORPHINE [Suspect]
     Active Substance: BUPRENORPHINE
     Route: 065
  7. BUPRENORPHINE [Suspect]
     Active Substance: BUPRENORPHINE
     Indication: Toothache
     Route: 003
  8. CLINDAMYCIN [Suspect]
     Active Substance: CLINDAMYCIN
     Indication: Toothache
     Route: 065
  9. CLINDAMYCIN [Suspect]
     Active Substance: CLINDAMYCIN
     Route: 065
  10. ACETAMINOPHEN\CODEINE PHOSPHATE [Suspect]
     Active Substance: ACETAMINOPHEN\CODEINE PHOSPHATE
     Indication: Toothache
     Route: 065
  11. CHLORHEXIDINE [Suspect]
     Active Substance: CHLORHEXIDINE
     Indication: Toothache
     Route: 061
  12. CHLORHEXIDINE [Suspect]
     Active Substance: CHLORHEXIDINE
     Route: 061
  13. CODEINE [Suspect]
     Active Substance: CODEINE
     Indication: Toothache
     Route: 065
  14. DICLOFENAC [Suspect]
     Active Substance: DICLOFENAC
     Indication: Toothache
     Route: 048
  15. DICLOFENAC [Suspect]
     Active Substance: DICLOFENAC
     Route: 061
  16. DULOXETINE [Suspect]
     Active Substance: DULOXETINE
     Indication: Pain
     Route: 065
  17. DIAZEPAM [Suspect]
     Active Substance: DIAZEPAM
     Indication: Toothache
     Route: 065
  18. ETORICOXIB [Suspect]
     Active Substance: ETORICOXIB
     Indication: Pain
     Route: 065
  19. FLURBIPROFEN [Suspect]
     Active Substance: FLURBIPROFEN
     Indication: Toothache
     Route: 061
  20. IBUPROFEN [Suspect]
     Active Substance: IBUPROFEN
     Indication: Toothache
     Route: 065
  21. IBUPROFEN [Suspect]
     Active Substance: IBUPROFEN
     Route: 065
  22. KETOPROFEN [Suspect]
     Active Substance: KETOPROFEN
     Indication: Toothache
     Route: 065
  23. METAMIZOLE [Suspect]
     Active Substance: METAMIZOLE
     Indication: Gingival pain
     Route: 065
  24. MORPHINE [Suspect]
     Active Substance: MORPHINE
     Indication: Toothache
     Route: 061
  25. MORPHINE [Suspect]
     Active Substance: MORPHINE
     Route: 061
  26. OXYCODONE [Suspect]
     Active Substance: OXYCODONE
     Indication: Toothache
     Route: 065
  27. OXYCODONE [Suspect]
     Active Substance: OXYCODONE
     Route: 065
  28. PREGABALIN [Suspect]
     Active Substance: PREGABALIN
     Indication: Product used for unknown indication
     Route: 065
  29. ACETAMINOPHEN [Suspect]
     Active Substance: ACETAMINOPHEN
     Indication: Gingival pain
     Route: 065
  30. ACETAMINOPHEN [Suspect]
     Active Substance: ACETAMINOPHEN
     Indication: Toothache
     Route: 065
  31. TRAZODONE [Suspect]
     Active Substance: TRAZODONE HYDROCHLORIDE
     Indication: Pain
     Route: 065
  32. XYLOCAINE [Suspect]
     Active Substance: LIDOCAINE HYDROCHLORIDE
     Indication: Toothache
     Route: 061
  33. XYLOCAINE [Suspect]
     Active Substance: LIDOCAINE HYDROCHLORIDE
     Route: 061
  34. XYLOCAINE [Suspect]
     Active Substance: LIDOCAINE HYDROCHLORIDE
     Indication: Toothache
     Route: 061
  35. XYLOCAINE [Suspect]
     Active Substance: LIDOCAINE HYDROCHLORIDE
     Route: 065
  36. IPIDACRINE [Concomitant]
     Active Substance: IPIDACRINE
     Route: 065
  37. IPIDACRINE [Concomitant]
     Active Substance: IPIDACRINE
     Indication: Product used for unknown indication
     Route: 065
  38. IPIDACRINE [Concomitant]
     Active Substance: IPIDACRINE
     Route: 065
  39. IPIDACRINE [Concomitant]
     Active Substance: IPIDACRINE
     Route: 065
  40. IPIDACRINE [Concomitant]
     Active Substance: IPIDACRINE
     Route: 065
  41. IPIDACRINE [Concomitant]
     Active Substance: IPIDACRINE
     Route: 065
  42. IPIDACRINE [Concomitant]
     Active Substance: IPIDACRINE
     Route: 065
  43. IPIDACRINE [Concomitant]
     Active Substance: IPIDACRINE
     Route: 065
  44. IPIDACRINE [Concomitant]
     Active Substance: IPIDACRINE
     Route: 065
  45. IPIDACRINE [Concomitant]
     Active Substance: IPIDACRINE
     Route: 065
  46. IPIDACRINE [Concomitant]
     Active Substance: IPIDACRINE
     Route: 065
  47. IPIDACRINE [Concomitant]
     Active Substance: IPIDACRINE
     Route: 065
  48. IPIDACRINE [Concomitant]
     Active Substance: IPIDACRINE
     Route: 065
  49. KETOPROFEN [Concomitant]
     Active Substance: KETOPROFEN
     Indication: Analgesic therapy
     Route: 065
  50. KETOPROFEN [Concomitant]
     Active Substance: KETOPROFEN
     Indication: Toothache
     Route: 065
  51. KETOPROFEN [Concomitant]
     Active Substance: KETOPROFEN
     Route: 065
  52. KETOPROFEN [Concomitant]
     Active Substance: KETOPROFEN
     Route: 065
  53. OXYCODONE [Concomitant]
     Active Substance: OXYCODONE
     Route: 065
  54. OXYCODONE [Concomitant]
     Active Substance: OXYCODONE
     Route: 065
  55. OXYCODONE [Concomitant]
     Active Substance: OXYCODONE
     Route: 065
  56. OXYCODONE [Concomitant]
     Active Substance: OXYCODONE
     Route: 065
  57. OXYCODONE [Concomitant]
     Active Substance: OXYCODONE
     Indication: Analgesic therapy
     Route: 061
  58. DOXYLAMINE [Interacting]
     Active Substance: DOXYLAMINE
     Indication: Depression
     Dosage: 25 MG AT NIGHT
     Route: 065
  59. DOXYLAMINE [Interacting]
     Active Substance: DOXYLAMINE
     Indication: Sleep disorder
  60. ESCITALOPRAM [Interacting]
     Active Substance: ESCITALOPRAM OXALATE
     Indication: Depression
     Dosage: 10 MG, QD (10 MILLIGRAM, QD (AT NIGHT))
     Route: 065
  61. ESCITALOPRAM [Interacting]
     Active Substance: ESCITALOPRAM OXALATE
     Indication: Insomnia

REACTIONS (10)
  - Toothache [Recovering/Resolving]
  - Hyperaesthesia [Recovered/Resolved]
  - Central pain syndrome [Recovered/Resolved]
  - Drug interaction [Unknown]
  - Hyperaesthesia [Recovered/Resolved]
  - Dry mouth [Unknown]
  - Somnolence [Unknown]
  - Drug ineffective [Unknown]
  - Off label use [Unknown]
  - Gingival pain [Recovering/Resolving]
